FAERS Safety Report 21631614 (Version 1)
Quarter: 2022Q4

REPORT INFORMATION
  Report Type: Spontaneous
  Country: NL (occurrence: None)
  Receive Date: 20221123
  Receipt Date: 20221123
  Transmission Date: 20230112
  Serious: Yes (Other)
  Sender: FDA-Public Use
  Company Number: 2022A380271

PATIENT
  Sex: Female
  Weight: 55 kg

DRUGS (3)
  1. FULVESTRANT [Suspect]
     Active Substance: FULVESTRANT
     Indication: Breast cancer metastatic
     Dosage: 250MG IN EACH GLUTEAL MUSCLE DAY 1 OF CYCLE500.0MG EVERY CYCLE
     Route: 065
     Dates: start: 20220323
  2. PALBOCICLIB [Suspect]
     Active Substance: PALBOCICLIB
     Indication: Breast cancer metastatic
     Dosage: 1X PER DAG 1 GEDURENDE 21 DAGEN, DAN 1 STOPWEEK
     Route: 065
     Dates: start: 20220428
  3. ZOLEDRONIC ACID [Concomitant]
     Active Substance: ZOLEDRONIC ACID
     Dosage: INFUSIEVLOEISTOF, 0,04 MG/ML (MILLIGRAM PER MILLILITER)
     Route: 065

REACTIONS (1)
  - Renal failure [Not Recovered/Not Resolved]
